FAERS Safety Report 11387268 (Version 1)
Quarter: 2015Q3

REPORT INFORMATION
  Report Type: Spontaneous
  Country: US (occurrence: US)
  Receive Date: 20150817
  Receipt Date: 20150817
  Transmission Date: 20151125
  Serious: Yes (Hospitalization)
  Sender: FDA-Public Use
  Company Number: PHEH2015US007540

PATIENT
  Sex: Male
  Weight: 73.98 kg

DRUGS (1)
  1. FARYDAK [Suspect]
     Active Substance: PANOBINOSTAT
     Indication: PLASMA CELL MYELOMA
     Dosage: 20 MG, (DAY 1,3,5,8,10 AND 12 REPEATS EVERY 3 WEEKS OF 8 CYCLES)
     Route: 048

REACTIONS (1)
  - Pneumonia [Unknown]
